FAERS Safety Report 12115782 (Version 2)
Quarter: 2016Q1

REPORT INFORMATION
  Report Type: Spontaneous
  Country: US (occurrence: US)
  Receive Date: 20160225
  Receipt Date: 20160330
  Transmission Date: 20160526
  Serious: Yes (Hospitalization)
  Sender: FDA-Public Use
  Company Number: US-PFIZER INC-2016108643

PATIENT
  Age: 59 Year
  Sex: Male

DRUGS (2)
  1. EMBEDA [Suspect]
     Active Substance: MORPHINE SULFATE\NALTREXONE HYDROCHLORIDE
     Indication: PAIN MANAGEMENT
     Dosage: 80 MG, 2X/DAY
     Dates: start: 20150410
  2. EMBEDA [Suspect]
     Active Substance: MORPHINE SULFATE\NALTREXONE HYDROCHLORIDE
     Dosage: 80 MG, 1X/DAY
     Dates: start: 20150413, end: 20150420

REACTIONS (3)
  - Intentional underdose [Recovered/Resolved]
  - Hypoxia [Recovered/Resolved]
  - Lethargy [Recovered/Resolved]

NARRATIVE: CASE EVENT DATE: 20150410
